FAERS Safety Report 19155974 (Version 2)
Quarter: 2025Q4

REPORT INFORMATION
  Report Type: Spontaneous
  Country: EU (occurrence: EU)
  Receive Date: 20210419
  Receipt Date: 20251009
  Transmission Date: 20260118
  Serious: Yes (Hospitalization, Other)
  Sender: PFIZER
  Company Number: None

PATIENT
  Age: 63 Year
  Sex: Male
  Weight: 86 kg

DRUGS (6)
  1. PANTOPRAZOLE [Suspect]
     Active Substance: PANTOPRAZOLE
     Indication: Gastric ulcer
     Dosage: UNK
     Route: 048
  2. DAPTOMYCIN [Suspect]
     Active Substance: DAPTOMYCIN
     Indication: Device related infection
     Dosage: UNK
     Route: 041
     Dates: start: 20210211, end: 20210224
  3. PIPERACILLIN [Suspect]
     Active Substance: PIPERACILLIN
     Indication: Device related infection
     Dosage: UNK
     Route: 041
     Dates: start: 20210216, end: 20210224
  4. TEICOPLANIN [Suspect]
     Active Substance: TEICOPLANIN
     Indication: Device related infection
     Dosage: UNK
     Route: 041
     Dates: start: 20210129, end: 20210210
  5. TAZOBACTAM [Suspect]
     Active Substance: TAZOBACTAM
     Indication: Device related infection
     Dosage: UNK
     Route: 041
     Dates: start: 20210216, end: 20210224
  6. CIPROFLOXACIN [Suspect]
     Active Substance: CIPROFLOXACIN
     Indication: Device related infection
     Dosage: UNK
     Route: 041
     Dates: start: 20210211, end: 20210224

REACTIONS (1)
  - Hepatitis cholestatic [Recovering/Resolving]

NARRATIVE: CASE EVENT DATE: 20210223
